FAERS Safety Report 10070708 (Version 2)
Quarter: 2014Q2

REPORT INFORMATION
  Report Type: Report from Study
  Country: US (occurrence: US)
  Receive Date: 20140410
  Receipt Date: 20140423
  Transmission Date: 20141212
  Serious: Yes (Other)
  Sender: FDA-Public Use
  Company Number: PHEH2014US006774

PATIENT
  Sex: Female

DRUGS (11)
  1. DIOVAN [Suspect]
     Dosage: 320
  2. DIOVAN [Suspect]
     Dosage: 2 DF (320), UNK
  3. TOPROL [Suspect]
     Dosage: UNK UKN, UNK
  4. TOPROL [Suspect]
     Dosage: DOUBLED, UNK
  5. SPIRIVA [Suspect]
     Dosage: UNK UKN, UNK
  6. SYNTHROID [Concomitant]
     Dosage: UNK UKN, UNK
  7. BAYER ASPIRIN [Concomitant]
     Dosage: 81
  8. ADVAIR [Concomitant]
     Dosage: UNK UKN, UNK
  9. VENTOLIN [Concomitant]
     Dosage: UNK UKN, UNK
  10. CALCIUM [Concomitant]
     Dosage: UNK UKN, UNK
  11. BIOTIN [Concomitant]
     Dosage: UNK UKN, UNK

REACTIONS (4)
  - Emphysema [Unknown]
  - Chronic obstructive pulmonary disease [Unknown]
  - Atrioventricular block [Unknown]
  - Blood pressure abnormal [Recovered/Resolved]
